FAERS Safety Report 9381996 (Version 3)
Quarter: 2013Q3

REPORT INFORMATION
  Report Type: Spontaneous
  Country: US (occurrence: US)
  Receive Date: 20130703
  Receipt Date: 20130724
  Transmission Date: 20140515
  Serious: Yes (Other)
  Sender: FDA-Public Use
  Company Number: US-PFIZER INC-2013193165

PATIENT
  Age: 12 Year
  Sex: Male

DRUGS (3)
  1. BENEFIX [Suspect]
     Indication: FACTOR IX DEFICIENCY
     Dosage: 6000 IU, MONTHLY
  2. BENEFIX [Suspect]
     Indication: INJURY
  3. BENEFIX [Suspect]
     Indication: DENTAL DISCOMFORT

REACTIONS (4)
  - Contusion [Unknown]
  - Fall [Unknown]
  - Scratch [Unknown]
  - Head injury [Unknown]
